FAERS Safety Report 20956020 (Version 2)
Quarter: 2022Q2

REPORT INFORMATION
  Report Type: Spontaneous
  Country: US (occurrence: None)
  Receive Date: 20220614
  Receipt Date: 20220615
  Transmission Date: 20220721
  Serious: No
  Sender: FDA-Public Use
  Company Number: US-MDD US Operations-MDD202201-000039

PATIENT
  Age: 76 Year
  Sex: Female
  Weight: 44.45 kg

DRUGS (11)
  1. APOKYN [Suspect]
     Active Substance: APOMORPHINE HYDROCHLORIDE
     Indication: Parkinson^s disease
     Route: 058
     Dates: start: 2022
  2. APOKYN [Suspect]
     Active Substance: APOMORPHINE HYDROCHLORIDE
     Route: 058
  3. APOKYN [Suspect]
     Active Substance: APOMORPHINE HYDROCHLORIDE
     Dosage: 0.1ML AS STARTER DOSE AND TITRATE BY 0.1ML EVERY FEW DAYS UP TO EFFECTIVE MAXIMUM RECOMMENDED DOSE O
     Route: 058
     Dates: start: 20211231
  4. INBRIJA [Suspect]
     Active Substance: LEVODOPA
     Dosage: NOT PROVIDED
  5. SINEMET CR [Concomitant]
     Active Substance: CARBIDOPA\LEVODOPA
     Dosage: NOT PROVIDED
  6. SINEMET CR [Concomitant]
     Active Substance: CARBIDOPA\LEVODOPA
     Dosage: NOT PROVIDED
  7. NEUPRO [Concomitant]
     Active Substance: ROTIGOTINE
     Dosage: NOT PROVIDED
  8. DUOPA [Concomitant]
     Active Substance: CARBIDOPA\LEVODOPA
     Dosage: NOT PROVIDED
  9. SINEMET [Concomitant]
     Active Substance: CARBIDOPA\LEVODOPA
     Dosage: NOT PROVIDED
  10. FORTEO [Concomitant]
     Active Substance: TERIPARATIDE
     Dosage: NOT PROVIDED
  11. VitaminC [Concomitant]
     Dosage: NOT PROVIDED

REACTIONS (5)
  - Nausea [Recovered/Resolved]
  - Somnolence [Recovered/Resolved]
  - Blood pressure systolic decreased [Unknown]
  - Fatigue [Recovered/Resolved]
  - Somnolence [Recovered/Resolved]

NARRATIVE: CASE EVENT DATE: 20220101
